FAERS Safety Report 22897209 (Version 2)
Quarter: 2023Q4

REPORT INFORMATION
  Report Type: Report from Study
  Country: US (occurrence: US)
  Receive Date: 20230902
  Receipt Date: 20231129
  Transmission Date: 20240109
  Serious: No
  Sender: FDA-Public Use
  Company Number: US-002147023-NVSC2023US190561

PATIENT
  Sex: Female

DRUGS (1)
  1. PIQRAY [Suspect]
     Active Substance: ALPELISIB
     Indication: Neoplasm malignant
     Dosage: 200 MG, QD
     Route: 048

REACTIONS (5)
  - Weight decreased [Unknown]
  - Asthenia [Unknown]
  - Dry mouth [Unknown]
  - Diarrhoea [Unknown]
  - Nasopharyngitis [Unknown]
